FAERS Safety Report 20187141 (Version 23)
Quarter: 2023Q2

REPORT INFORMATION
  Report Type: Report from Study
  Country: US (occurrence: US)
  Receive Date: 20211215
  Receipt Date: 20230617
  Transmission Date: 20230721
  Serious: No
  Sender: FDA-Public Use
  Company Number: US-NOVARTISTESTPH-NVSC2021US287527

PATIENT
  Sex: Female
  Weight: 47.2 kg

DRUGS (20)
  1. TREPROSTINIL [Suspect]
     Active Substance: TREPROSTINIL
     Indication: Pulmonary arterial hypertension
     Dosage: 17.75 NG/KG/MIN, CONT
     Route: 058
     Dates: start: 20211111
  2. TREPROSTINIL [Suspect]
     Active Substance: TREPROSTINIL
     Dosage: 20.25 NG/KG/MIN, CONT
     Route: 058
  3. TREPROSTINIL [Suspect]
     Active Substance: TREPROSTINIL
     Dosage: 38.25 NG/KG/MIN, CONT
     Route: 058
  4. TREPROSTINIL [Suspect]
     Active Substance: TREPROSTINIL
     Dosage: 40 NG/KG/MIN, CONT
     Route: 058
  5. TREPROSTINIL [Suspect]
     Active Substance: TREPROSTINIL
     Dosage: 40 NG/KG/MIN, CONT (STRENGTH- 5MG/ML)
     Route: 058
  6. TREPROSTINIL [Suspect]
     Active Substance: TREPROSTINIL
     Dosage: 40 NG/KG/MIN, CONT
     Route: 058
  7. TREPROSTINIL [Suspect]
     Active Substance: TREPROSTINIL
     Dosage: 50 NG/KG/MIN, CONT
     Route: 058
  8. TREPROSTINIL [Suspect]
     Active Substance: TREPROSTINIL
     Dosage: 50 NG/KG/MIN, CONT (STRENGTH: 5 MG/ML)
     Route: 058
  9. TREPROSTINIL [Suspect]
     Active Substance: TREPROSTINIL
     Dosage: 22.5 NG/KG/MIN, CONT (STRENGTH: 5 MG/ML)
     Route: 058
  10. TREPROSTINIL [Suspect]
     Active Substance: TREPROSTINIL
     Dosage: 15.5 NG/KG/ MIN CONT
     Route: 065
     Dates: start: 20211111
  11. TREPROSTINIL [Suspect]
     Active Substance: TREPROSTINIL
     Dosage: UNK
     Route: 048
     Dates: start: 20230426
  12. TREPROSTINIL [Suspect]
     Active Substance: TREPROSTINIL
     Dosage: 2.5 MG, TID
     Route: 048
  13. TREPROSTINIL [Suspect]
     Active Substance: TREPROSTINIL
     Dosage: 3.5 MG, TID
     Route: 048
  14. TREPROSTINIL [Suspect]
     Active Substance: TREPROSTINIL
     Dosage: 3.75 MG, TID
     Route: 048
  15. TREPROSTINIL [Suspect]
     Active Substance: TREPROSTINIL
     Dosage: 0.0155 ?G/KG
     Route: 058
  16. ORENITRAM [Suspect]
     Active Substance: TREPROSTINIL
     Indication: Product used for unknown indication
     Dosage: 13.5 MG, TID
     Route: 065
  17. OPSUMIT [Concomitant]
     Active Substance: MACITENTAN
     Indication: Product used for unknown indication
     Dosage: UNK
     Route: 065
  18. UPTRAVI [Concomitant]
     Active Substance: SELEXIPAG
     Indication: Product used for unknown indication
     Dosage: UNK
     Route: 065
  19. TADALAFIL [Concomitant]
     Active Substance: TADALAFIL
     Indication: Product used for unknown indication
     Dosage: UNK
     Route: 065
  20. REMODULIN [Concomitant]
     Active Substance: TREPROSTINIL
     Indication: Product used for unknown indication
     Dosage: UNK (15.5 NG.KG/MINUTE)
     Route: 065

REACTIONS (18)
  - Dermatitis contact [Unknown]
  - Gait disturbance [Unknown]
  - Scab [Unknown]
  - Palpitations [Unknown]
  - Swelling [Unknown]
  - Infusion site pain [Recovered/Resolved]
  - Infusion site erythema [Unknown]
  - Infusion site rash [Unknown]
  - Infusion site swelling [Unknown]
  - Infusion site pruritus [Unknown]
  - Infusion site hypersensitivity [Unknown]
  - Infusion site pain [Not Recovered/Not Resolved]
  - Myalgia [Unknown]
  - Dyspnoea [Unknown]
  - Diarrhoea [Unknown]
  - Headache [Unknown]
  - Dizziness [Unknown]
  - Vomiting [Unknown]
